FAERS Safety Report 24671667 (Version 5)
Quarter: 2025Q1

REPORT INFORMATION
  Report Type: Report from Study
  Country: JP (occurrence: JP)
  Receive Date: 20241127
  Receipt Date: 20250331
  Transmission Date: 20250408
  Serious: Yes (Hospitalization, Other)
  Sender: PFIZER
  Company Number: JP-PFIZER INC-202300294599

PATIENT
  Age: 16 Day
  Sex: Male
  Weight: 3.103 kg

DRUGS (17)
  1. SIROLIMUS [Suspect]
     Active Substance: SIROLIMUS
     Indication: Lymphatic malformation
     Dosage: 0.06 MG,1 D
     Route: 048
     Dates: start: 20230201, end: 20230321
  2. SIROLIMUS [Suspect]
     Active Substance: SIROLIMUS
     Dosage: 0.07 MG,1 D
     Route: 048
     Dates: start: 20230322, end: 20230406
  3. SIROLIMUS [Suspect]
     Active Substance: SIROLIMUS
     Dosage: 0.09 MG,1 D
     Route: 048
     Dates: start: 20230407, end: 20230423
  4. SIROLIMUS [Suspect]
     Active Substance: SIROLIMUS
     Dosage: 0.08 MG,1 D
     Route: 048
     Dates: start: 20230424, end: 20230524
  5. SIROLIMUS [Suspect]
     Active Substance: SIROLIMUS
     Dosage: 0.1 MG,1 D
     Route: 048
     Dates: start: 20230525, end: 20230627
  6. SIROLIMUS [Suspect]
     Active Substance: SIROLIMUS
     Dosage: 0.2 MG,1 D
     Route: 048
     Dates: start: 20230628, end: 20231024
  7. SIROLIMUS [Suspect]
     Active Substance: SIROLIMUS
     Dosage: 0.4 MG,1 D
     Route: 048
     Dates: start: 20231025, end: 20231121
  8. SIROLIMUS [Suspect]
     Active Substance: SIROLIMUS
     Dosage: 0.6 MG,1 D
     Route: 048
     Dates: start: 20231122
  9. MENATETRENONE [Concomitant]
     Active Substance: MENATETRENONE
     Indication: Prophylaxis
     Dosage: 1 ML,1 WK
     Route: 048
     Dates: start: 20230126, end: 20230426
  10. FERRIC PYROPHOSPHATE [Concomitant]
     Active Substance: FERRIC PYROPHOSPHATE
     Indication: Prophylaxis
     Route: 048
     Dates: start: 20230420, end: 20230905
  11. CARBOCYSTEINE [Concomitant]
     Active Substance: CARBOCYSTEINE
     Indication: Prophylaxis
     Route: 048
     Dates: start: 20231206
  12. PRANLUKAST [Concomitant]
     Active Substance: PRANLUKAST
     Indication: Prophylaxis
     Route: 048
     Dates: start: 20231206
  13. BETAMETHASONE [Concomitant]
     Active Substance: BETAMETHASONE
     Indication: Prophylaxis
     Route: 048
     Dates: start: 20240113, end: 20240115
  14. CALONAL [Concomitant]
     Active Substance: ACETAMINOPHEN
     Indication: Prophylaxis
     Route: 048
     Dates: start: 20230911, end: 20230920
  15. CALONAL [Concomitant]
     Active Substance: ACETAMINOPHEN
     Route: 048
     Dates: start: 20231201, end: 20231215
  16. PROCATEROL HYDROCHLORIDE [Concomitant]
     Active Substance: PROCATEROL HYDROCHLORIDE
     Indication: Prophylaxis
     Route: 055
     Dates: start: 20240119, end: 20240126
  17. CROMOLYN SODIUM [Concomitant]
     Active Substance: CROMOLYN SODIUM
     Indication: Prophylaxis
     Route: 055
     Dates: start: 20240119, end: 20240126

REACTIONS (5)
  - Septic pulmonary embolism [Recovered/Resolved]
  - Nasopharyngitis [Recovered/Resolved]
  - Fever neonatal [Recovered/Resolved]
  - Bronchitis [Recovering/Resolving]
  - Wrong technique in product usage process [Unknown]

NARRATIVE: CASE EVENT DATE: 20230211
